FAERS Safety Report 5408697-4 (Version None)
Quarter: 2007Q3

REPORT INFORMATION
  Report Type: 
  Country: None (occurrence: None)
  Receive Date: 20070808
  Receipt Date: 20070803
  Transmission Date: 20080115
  Serious: Yes (Other)
  Sender: FDA-Public Use
  Company Number: A0667960A

PATIENT
  Sex: Female

DRUGS (2)
  1. FLONASE [Suspect]
     Indication: MULTIPLE ALLERGIES
     Dosage: 4PUFF TWICE PER DAY
     Dates: start: 20040101
  2. MULTIVITAMIN [Concomitant]

REACTIONS (2)
  - CHONDROPATHY [None]
  - NASAL SEPTUM PERFORATION [None]
